FAERS Safety Report 5803447-1 (Version None)
Quarter: 2008Q2

REPORT INFORMATION
  Report Type: 
  Country: None (occurrence: None)
  Receive Date: 20080627
  Receipt Date: 20080411
  Transmission Date: 20081010
  Serious: Yes (Other)
  Sender: FDA-Public Use
  Company Number: 47181

PATIENT
  Age: 5 Month
  Sex: Female
  Weight: 3 kg

DRUGS (6)
  1. VECURONIUM BROMIDE [Suspect]
     Indication: SEDATIVE THERAPY
     Dosage: PARALYSIS POST-OP
     Dates: start: 20080207, end: 20080229
  2. MIDAZOLAM [Concomitant]
  3. OXACILLIN [Concomitant]
  4. FENTANYL-25 [Concomitant]
  5. POTASSIUM CHLORIDE [Concomitant]
  6. CALCIUM IV [Concomitant]

REACTIONS (1)
  - DRUG INEFFECTIVE [None]
